FAERS Safety Report 7914508-5 (Version None)
Quarter: 2011Q4

REPORT INFORMATION
  Report Type: 
  Country: None (occurrence: None)
  Receive Date: 20111115
  Receipt Date: 20111031
  Transmission Date: 20120403
  Serious: Yes (Other)
  Sender: FDA-Public Use
  Company Number: PHHY2011BR96854

PATIENT
  Sex: Female

DRUGS (5)
  1. PREDNISONE TAB [Concomitant]
  2. ALBUTEROL SULFATE AUTOHALER [Concomitant]
     Dosage: 4 APPLICATIONS EACH 4 HOURS
  3. AMOXICILLIN AND CLAVULANATE POTASSIUM [Concomitant]
     Dosage: 1 DF, Q8H
  4. FORMOTEROL FUMARATE [Suspect]
     Dosage: 1 WHITE CAPSULE EVERY 12 HOURS
  5. FORMOTEROL FUMARATE [Suspect]
     Dosage: 1 WHITE CAPSULE AND 1 PINK CAPSULE EVERY 12 HOURS

REACTIONS (6)
  - DYSSTASIA [None]
  - COUGH [None]
  - THROAT IRRITATION [None]
  - GLAUCOMA [None]
  - TREMOR [None]
  - HEART RATE INCREASED [None]
